FAERS Safety Report 13145044 (Version 12)
Quarter: 2018Q4

REPORT INFORMATION
  Report Type: Report from Study
  Country: BR (occurrence: BR)
  Receive Date: 20170124
  Receipt Date: 20181227
  Transmission Date: 20190204
  Serious: Yes (Other)
  Sender: FDA-Public Use
  Company Number: PHHY2016BR162967

PATIENT
  Sex: Female
  Weight: 115 kg

DRUGS (16)
  1. SANDOSTATIN LAR DEPOT [Suspect]
     Active Substance: OCTREOTIDE ACETATE
     Dosage: 20 UNK, UNK (EVERY 45 DAYS)
     Route: 030
  2. SANDOSTATIN LAR DEPOT [Suspect]
     Active Substance: OCTREOTIDE ACETATE
     Dosage: 20 MG (EVERY 15 WEEKS)
     Route: 030
  3. INSULIN [Concomitant]
     Active Substance: INSULIN NOS
     Indication: DIABETES MELLITUS
     Dosage: 1 DF, QD
     Route: 048
  4. SANDOSTATIN LAR DEPOT [Suspect]
     Active Substance: OCTREOTIDE ACETATE
     Dosage: 2 MONTHS AND A HALF
     Route: 030
  5. ENALAPRIL [Concomitant]
     Active Substance: ENALAPRIL
     Indication: HYPERTENSION
     Dosage: 2 DF, QD
     Route: 048
  6. SANDOSTATIN LAR DEPOT [Suspect]
     Active Substance: OCTREOTIDE ACETATE
     Dosage: QMO (EVERY MONTH)
     Route: 030
  7. SANDOSTATIN LAR DEPOT [Suspect]
     Active Substance: OCTREOTIDE ACETATE
     Dosage: 20 MG, (EVERY 14 WEEKS)
     Route: 030
  8. SANDOSTATIN LAR DEPOT [Suspect]
     Active Substance: OCTREOTIDE ACETATE
     Dosage: 20 MG, UNK
     Route: 030
  9. FORXIGA [Concomitant]
     Active Substance: DAPAGLIFLOZIN
     Indication: DIABETES MELLITUS
     Dosage: 1 DF, QD
     Route: 048
  10. SIMVASTATIN. [Concomitant]
     Active Substance: SIMVASTATIN
     Indication: BLOOD CHOLESTEROL
     Dosage: HALF TABLET A DAY
     Route: 048
  11. SANDOSTATIN LAR DEPOT [Suspect]
     Active Substance: OCTREOTIDE ACETATE
     Dosage: 2 MONTHS
     Route: 030
  12. PURAN [Concomitant]
     Active Substance: LEVOTHYROXINE SODIUM
     Indication: PRODUCT USED FOR UNKNOWN INDICATION
     Dosage: 1 DF, QD
     Route: 048
  13. SANDOSTATIN LAR DEPOT [Suspect]
     Active Substance: OCTREOTIDE ACETATE
     Indication: ACROMEGALY
     Dosage: 20 MG, UNK
     Route: 030
     Dates: start: 2006
  14. SANDOSTATIN LAR DEPOT [Suspect]
     Active Substance: OCTREOTIDE ACETATE
     Dosage: 3 MONTHS AND A HALF
     Route: 030
  15. SANDOSTATIN LAR DEPOT [Suspect]
     Active Substance: OCTREOTIDE ACETATE
     Dosage: 3 MONTHS
     Route: 030
  16. SANDOSTATIN LAR DEPOT [Suspect]
     Active Substance: OCTREOTIDE ACETATE
     Dosage: 20 MG, (EVERY 15 WEEKS)
     Route: 030

REACTIONS (25)
  - Body height below normal [Unknown]
  - Cataract [Unknown]
  - Spinal column stenosis [Unknown]
  - Obesity [Unknown]
  - Malaise [Not Recovered/Not Resolved]
  - Tendonitis [Not Recovered/Not Resolved]
  - Osteoarthritis [Not Recovered/Not Resolved]
  - Weight decreased [Unknown]
  - Amnesia [Unknown]
  - Hyperaesthesia [Unknown]
  - Depression [Unknown]
  - Pain [Recovering/Resolving]
  - Gait disturbance [Recovering/Resolving]
  - Depressed mood [Not Recovered/Not Resolved]
  - Exostosis [Not Recovered/Not Resolved]
  - Carpal tunnel syndrome [Not Recovered/Not Resolved]
  - Nerve compression [Unknown]
  - Pain in extremity [Unknown]
  - Body height decreased [Not Recovered/Not Resolved]
  - Inappropriate schedule of product administration [Unknown]
  - Visual impairment [Unknown]
  - Arthropathy [Unknown]
  - Peripheral swelling [Unknown]
  - Hypoaesthesia [Not Recovered/Not Resolved]
  - Weight increased [Unknown]
